FAERS Safety Report 6717470-6 (Version None)
Quarter: 2010Q2

REPORT INFORMATION
  Report Type: 
  Country: None (occurrence: None)
  Receive Date: 20100510
  Receipt Date: 20100430
  Transmission Date: 20101027
  Serious: Yes (Hospitalization)
  Sender: FDA-Public Use
  Company Number: JP-ABBOTT-10P-087-0632318-00

PATIENT
  Age: 88 Year
  Sex: Male

DRUGS (8)
  1. LEUPROLIDE ACETATE [Suspect]
     Indication: PROSTATE CANCER STAGE III
     Route: 058
     Dates: start: 20060509, end: 20071218
  2. EURODIN [Concomitant]
     Indication: INSOMNIA
     Route: 048
  3. SERMION [Concomitant]
     Indication: CEREBRAL INFARCTION
     Route: 048
  4. IBUDILAST [Concomitant]
     Indication: CEREBRAL INFARCTION
     Route: 048
  5. SULPIRIDE [Concomitant]
     Indication: CEREBRAL INFARCTION
     Route: 048
  6. HYDROXOCOBALAMIN ACETATE [Concomitant]
     Indication: CEREBRAL INFARCTION
     Route: 048
  7. TEPRENONE [Concomitant]
     Indication: PROPHYLAXIS AGAINST GASTROINTESTINAL ULCER
     Route: 048
  8. TRIAZOLAM [Concomitant]
     Indication: INSOMNIA
     Route: 048

REACTIONS (3)
  - ANKLE FRACTURE [None]
  - HEPATIC NEOPLASM MALIGNANT [None]
  - PANCREATIC CARCINOMA [None]
